FAERS Safety Report 5949414-9 (Version None)
Quarter: 2008Q4

REPORT INFORMATION
  Report Type: 
  Country: None (occurrence: None)
  Receive Date: 20081112
  Receipt Date: 20081031
  Transmission Date: 20090506
  Serious: Yes (Other)
  Sender: FDA-Public Use
  Company Number: PHHY2008GB27473

PATIENT
  Sex: Female

DRUGS (1)
  1. LIORESAL [Suspect]
     Dosage: UNK

REACTIONS (4)
  - AMNESIA [None]
  - GASTRIC DISORDER [None]
  - HALLUCINATION [None]
  - MENSTRUAL DISORDER [None]
